FAERS Safety Report 10545049 (Version 2)
Quarter: 2015Q3

REPORT INFORMATION
  Report Type: Spontaneous
  Country: US (occurrence: US)
  Receive Date: 20141027
  Receipt Date: 20150727
  Transmission Date: 20151125
  Serious: Yes (Hospitalization, Other)
  Sender: FDA-Public Use
  Company Number: US-BAYER-2014-156232

PATIENT
  Age: 26 Year
  Sex: Female
  Weight: 52.15 kg

DRUGS (5)
  1. SYNTHROID [Concomitant]
     Active Substance: LEVOTHYROXINE SODIUM
     Dosage: 75 MCG, QD
     Route: 048
     Dates: start: 2011
  2. VITAMIN D [Concomitant]
     Active Substance: CHOLECALCIFEROL
     Dosage: 1000 U, UNK
     Dates: start: 20120817
  3. VITAMIN B12 [Concomitant]
     Active Substance: CYANOCOBALAMIN
     Dosage: 5K-100 MCG, UNK
     Dates: start: 20120817
  4. MIRENA [Suspect]
     Active Substance: LEVONORGESTREL
     Indication: CONTRACEPTION
     Dosage: 20 MCG/24HR, CONT
     Route: 015
     Dates: start: 20120817, end: 20121005
  5. ZOFRAN [Concomitant]
     Active Substance: ONDANSETRON HYDROCHLORIDE
     Indication: NAUSEA
     Dosage: UNK
     Dates: start: 2011, end: 2012

REACTIONS (10)
  - Pain [None]
  - Depression [None]
  - Stress [None]
  - Device dislocation [None]
  - Device issue [None]
  - Anxiety [None]
  - Injury [None]
  - Emotional distress [None]
  - Uterine perforation [None]
  - Abortion spontaneous [None]

NARRATIVE: CASE EVENT DATE: 201209
